FAERS Safety Report 8538470-X (Version None)
Quarter: 2012Q3

REPORT INFORMATION
  Report Type: 
  Country: None (occurrence: None)
  Receive Date: 20120718
  Receipt Date: 20120718
  Transmission Date: 20120928
  Serious: Yes (Hospitalization)
  Sender: FDA-Public Use
  Company Number: None

PATIENT
  Age: 77 Year
  Sex: Male

DRUGS (1)
  1. URIBEL 118 MG CAPSULES 3 TIMES DAILY MFG MISSION [Suspect]
     Indication: BLADDER INJURY
     Dates: start: 20120525, end: 20120526

REACTIONS (1)
  - ATRIAL FIBRILLATION [None]
